FAERS Safety Report 7432448-5 (Version None)
Quarter: 2011Q2

REPORT INFORMATION
  Report Type: 
  Country: None (occurrence: None)
  Receive Date: 20110414
  Receipt Date: 20110402
  Transmission Date: 20111010
  Serious: Yes (Disabling)
  Sender: FDA-Public Use
  Company Number: MIN-00712

PATIENT
  Age: 71 Year

DRUGS (4)
  1. DEXAMETHASONE SODIUM POSPHATE [Suspect]
     Indication: AGE-RELATED MACULAR DEGENERATION
     Dosage: 200 UG INTRAVITREAL INJECTION AT BASELINE
  2. MINOCYCLINE HCL [Suspect]
     Indication: AGE-RELATED MACULAR DEGENERATION
     Dosage: 100 MG DAILY, ORAL
     Route: 048
  3. LUCENTIS [Suspect]
     Indication: AGE-RELATED MACULAR DEGENERATION
     Dosage: INTRAVITREAL INJECTION AT BASELINE, MONTH 3, AND TWO MORE ADMINISTRATIONS (DATES UNKNOWN)
  4. REDUCED-FLUENCE (25MJ/CM2) PDT WITH VERTEPORFIN [Suspect]
     Indication: AGE-RELATED MACULAR DEGENERATION
     Dosage: SINGLE CYCLE

REACTIONS (1)
  - SUBRETINAL FIBROSIS [None]
